FAERS Safety Report 8494786-7 (Version None)
Quarter: 2012Q3

REPORT INFORMATION
  Report Type: 
  Country: None (occurrence: None)
  Receive Date: 20120709
  Receipt Date: 20120628
  Transmission Date: 20120928
  Serious: Yes (Hospitalization, Other)
  Sender: FDA-Public Use
  Company Number: US-JNJFOC-20120101331

PATIENT
  Sex: Female
  Weight: 47.17 kg

DRUGS (8)
  1. PROTONIX [Concomitant]
     Indication: GASTROOESOPHAGEAL REFLUX DISEASE
     Route: 048
     Dates: start: 20010101
  2. REMICADE [Suspect]
     Route: 042
     Dates: start: 20010101
  3. PENTASA [Concomitant]
     Indication: CROHN'S DISEASE
     Route: 048
  4. REMICADE [Suspect]
     Route: 042
     Dates: start: 20120516
  5. REMICADE [Suspect]
     Route: 042
     Dates: start: 20020101
  6. REMICADE [Suspect]
     Indication: CROHN'S DISEASE
     Route: 042
     Dates: start: 20120125
  7. REMICADE [Suspect]
     Route: 042
     Dates: end: 20060801
  8. ENTOCORT EC [Concomitant]
     Indication: CROHN'S DISEASE
     Route: 048

REACTIONS (31)
  - OVARIAN CYST [None]
  - ARTHRITIS [None]
  - CONSTIPATION [None]
  - EYE DISCHARGE [None]
  - MALAISE [None]
  - EYE PAIN [None]
  - LIVER FUNCTION TEST ABNORMAL [None]
  - LUPUS-LIKE SYNDROME [None]
  - CHEST PAIN [None]
  - URTICARIA [None]
  - ABDOMINAL PAIN UPPER [None]
  - ENDOMETRIOSIS [None]
  - CROHN'S DISEASE [None]
  - JOINT SWELLING [None]
  - ARTHRALGIA [None]
  - BLOOD IRON DECREASED [None]
  - BLOOD POTASSIUM DECREASED [None]
  - ALOPECIA [None]
  - ABDOMINAL DISTENSION [None]
  - ERYTHEMA [None]
  - NAUSEA [None]
  - BONE PAIN [None]
  - ANXIETY [None]
  - RED BLOOD CELL COUNT ABNORMAL [None]
  - PHOTOPHOBIA [None]
  - MYALGIA [None]
  - HEADACHE [None]
  - PYREXIA [None]
  - HYPERHIDROSIS [None]
  - DRUG INEFFECTIVE [None]
  - WHITE BLOOD CELL COUNT ABNORMAL [None]
